FAERS Safety Report 5378505-9 (Version None)
Quarter: 2007Q3

REPORT INFORMATION
  Report Type: 
  Country: None (occurrence: None)
  Receive Date: 20070702
  Receipt Date: 20070626
  Transmission Date: 20080115
  Serious: Yes (Hospitalization)
  Sender: FDA-Public Use
  Company Number: 2007SP012974

PATIENT
  Age: 68 Year
  Sex: Female

DRUGS (3)
  1. PEG-INTRON [Suspect]
     Indication: HEPATITIS C
     Dosage: 100 MCG; QW; SC
     Route: 058
     Dates: start: 20060818
  2. REBETOL [Suspect]
     Indication: HEPATITIS C
     Dosage: 600 MG; PO
     Route: 048
     Dates: start: 20060818
  3. WARFARIN SODIUM [Concomitant]

REACTIONS (1)
  - HYPERKALAEMIA [None]
